FAERS Safety Report 6504977-X (Version None)
Quarter: 2009Q4

REPORT INFORMATION
  Report Type: 
  Country: None (occurrence: None)
  Receive Date: 20091218
  Receipt Date: 20091207
  Transmission Date: 20100525
  Serious: Yes (Other)
  Sender: FDA-Public Use
  Company Number: US-SANOFI-AVENTIS-2009SA006882

PATIENT
  Age: 67 Year
  Sex: Male

DRUGS (5)
  1. MULTAQ [Suspect]
     Route: 048
     Dates: start: 20090801, end: 20091001
  2. DILTIAZEM [Concomitant]
     Route: 048
     Dates: end: 20090101
  3. DILTIAZEM [Concomitant]
     Route: 048
     Dates: start: 20090101
  4. LIPITOR [Concomitant]
  5. PRILOSEC [Concomitant]

REACTIONS (4)
  - ATRIAL FIBRILLATION [None]
  - BRADYCARDIA [None]
  - DIZZINESS [None]
  - HEART RATE [None]
